FAERS Safety Report 15832033 (Version 2)
Quarter: 2019Q1

REPORT INFORMATION
  Report Type: Report from Study
  Country: NL (occurrence: NL)
  Receive Date: 20190116
  Receipt Date: 20190213
  Transmission Date: 20190417
  Serious: Yes (Other)
  Sender: FDA-Public Use
  Company Number: NL-B.I. PHARMACEUTICALS,INC./RIDGEFIELD-2019-BI-001266

PATIENT
  Age: 37 Year
  Sex: Female

DRUGS (6)
  1. GILOTRIF [Suspect]
     Active Substance: AFATINIB
     Indication: EGFR GENE MUTATION
     Route: 065
  2. GILOTRIF [Suspect]
     Active Substance: AFATINIB
     Indication: NON-SMALL CELL LUNG CANCER STAGE IV
  3. ERLOTINIB [Concomitant]
     Active Substance: ERLOTINIB
     Indication: NON-SMALL CELL LUNG CANCER STAGE IV
  4. ERLOTINIB [Concomitant]
     Active Substance: ERLOTINIB
     Indication: EGFR GENE MUTATION
     Route: 065
  5. CARBOPLATIN;PEMETREXED [Concomitant]
     Indication: NON-SMALL CELL LUNG CANCER STAGE IV
  6. CARBOPLATIN;PEMETREXED [Concomitant]
     Indication: EGFR GENE MUTATION
     Route: 065

REACTIONS (2)
  - Pneumonitis [Unknown]
  - Malignant neoplasm progression [Unknown]
